FAERS Safety Report 8765286 (Version 1)
Quarter: 2012Q4

REPORT INFORMATION
  Report Type: 
  Country: US (occurrence: US)
  Receive Date: 20120831
  Receipt Date: 20120831
  Transmission Date: 20130627
  Serious: No
  Sender: FDA-Public Use
  Company Number: US-ASTRAZENECA-2011SE58032

PATIENT
  Age: 76 Year
  Sex: Female
  Weight: 55.3 kg

DRUGS (4)
  1. SYMBICORT [Suspect]
     Indication: EMPHYSEMA
     Dosage: 2 PUFFS BID
     Route: 055
     Dates: start: 2010
  2. SYMBICORT [Suspect]
     Indication: ASTHMA
     Dosage: 2 PUFFS BID
     Route: 055
     Dates: start: 2010
  3. SYMBICORT [Suspect]
     Indication: EMPHYSEMA
     Route: 055
  4. SYMBICORT [Suspect]
     Indication: ASTHMA
     Route: 055

REACTIONS (2)
  - Contusion [Unknown]
  - Purpura [Unknown]
